FAERS Safety Report 14655660 (Version 1)
Quarter: 2018Q1

REPORT INFORMATION
  Report Type: Spontaneous
  Country: US (occurrence: US)
  Receive Date: 20180319
  Receipt Date: 20180319
  Transmission Date: 20180509
  Serious: No
  Sender: FDA-Public Use
  Company Number: US-TEVA-816437ACC

PATIENT
  Sex: Male

DRUGS (1)
  1. BUPRENORPHINE W/NALOXONE [Suspect]
     Active Substance: BUPRENORPHINE HYDROCHLORIDE\NALOXONE HYDROCHLORIDE
     Indication: DEPENDENCE

REACTIONS (5)
  - Apathy [Unknown]
  - Arthralgia [Unknown]
  - Drug ineffective [Unknown]
  - Product solubility abnormal [Unknown]
  - Hyperhidrosis [Unknown]
